FAERS Safety Report 4344886-8 (Version None)
Quarter: 2004Q2

REPORT INFORMATION
  Report Type: 
  Country: None (occurrence: None)
  Receive Date: 20040420
  Receipt Date: 20040408
  Transmission Date: 20050107
  Serious: Yes (Death, Hospitalization)
  Sender: FDA-Public Use
  Company Number: 04P-163-0256425

PATIENT
  Age: 81 Year
  Sex: Female

DRUGS (6)
  1. HUMIRA [Suspect]
     Indication: RHEUMATOID ARTHRITIS
     Dosage: 40 MG, 1 IN 2 WK, SUBCUTANEOUS
     Route: 058
     Dates: start: 20030501, end: 20040220
  2. PREDNISONE [Concomitant]
  3. CITALOPRAM HYDROBROMIDE [Concomitant]
  4. OXYCODONE HCL [Concomitant]
  5. METHOTREXATE [Concomitant]
  6. FOLIC ACID [Concomitant]

REACTIONS (5)
  - ARTHRITIS INFECTIVE [None]
  - FALL [None]
  - JOINT INJURY [None]
  - MEDICAL DEVICE COMPLICATION [None]
  - POSTOPERATIVE INFECTION [None]
